FAERS Safety Report 8100895-4 (Version None)
Quarter: 2012Q1

REPORT INFORMATION
  Report Type: 
  Country: None (occurrence: None)
  Receive Date: 20120129
  Receipt Date: 20110907
  Transmission Date: 20120608
  Serious: No
  Sender: FDA-Public Use
  Company Number: US-ABBOTT-11P-163-0853129-00

PATIENT
  Age: 66 Year
  Sex: Female

DRUGS (5)
  1. METFORMIN HCL [Concomitant]
     Indication: DIABETES MELLITUS
     Route: 048
  2. IBUPROFEN [Concomitant]
     Indication: PAIN
     Route: 048
  3. HUMIRA [Suspect]
     Indication: PSORIASIS
     Dates: start: 20031001
  4. HUMIRA [Suspect]
     Dates: start: 20090101
  5. HUMIRA [Suspect]

REACTIONS (6)
  - INJECTION SITE ERYTHEMA [None]
  - DRUG INEFFECTIVE [None]
  - PSORIASIS [None]
  - FATIGUE [None]
  - INJECTION SITE PAIN [None]
  - SKIN EXFOLIATION [None]
